FAERS Safety Report 5744758-8 (Version None)
Quarter: 2008Q2

REPORT INFORMATION
  Report Type: 
  Country: None (occurrence: None)
  Receive Date: 20080520
  Receipt Date: 20080508
  Transmission Date: 20081010
  Serious: Yes (Other)
  Sender: FDA-Public Use
  Company Number: US-PFIZER INC-2008031624

PATIENT
  Sex: Female
  Weight: 104.3 kg

DRUGS (7)
  1. LYRICA [Suspect]
     Indication: FIBROMYALGIA
     Dates: start: 20080101, end: 20080311
  2. LISINOPRIL [Concomitant]
     Indication: BLOOD PRESSURE
  3. DARVOCET-N [Concomitant]
  4. CYMBALTA [Concomitant]
  5. ELAVIL [Concomitant]
  6. NEXIUM [Concomitant]
  7. HYDROCHLOROTHIAZIDE [Concomitant]

REACTIONS (11)
  - ACTIVITIES OF DAILY LIVING IMPAIRED [None]
  - ARTHRALGIA [None]
  - BURNING SENSATION [None]
  - DIZZINESS [None]
  - DRUG INTOLERANCE [None]
  - FEELING ABNORMAL [None]
  - HYPOAESTHESIA [None]
  - JOINT SWELLING [None]
  - OEDEMA PERIPHERAL [None]
  - PAIN IN EXTREMITY [None]
  - SOMNOLENCE [None]
